FAERS Safety Report 4827687-3 (Version None)
Quarter: 2005Q4

REPORT INFORMATION
  Report Type: 
  Country: None (occurrence: None)
  Receive Date: 20051110
  Receipt Date: 20051103
  Transmission Date: 20060501
  Serious: Yes (Hospitalization)
  Sender: FDA-Public Use
  Company Number: DE_051117445

PATIENT
  Age: 65 Year
  Sex: Male

DRUGS (3)
  1. GEMZAR [Suspect]
     Indication: NON-SMALL CELL LUNG CANCER
     Dosage: 1000 MG/2
  2. CARBOPLATIN [Concomitant]
  3. AVC [Concomitant]

REACTIONS (4)
  - ASCITES [None]
  - DRUG INEFFECTIVE [None]
  - GENERALISED OEDEMA [None]
  - RETRACTED NIPPLE [None]
